FAERS Safety Report 18855404 (Version 3)
Quarter: 2021Q2

REPORT INFORMATION
  Report Type: Spontaneous
  Country: US (occurrence: US)
  Receive Date: 20210205
  Receipt Date: 20210617
  Transmission Date: 20210717
  Serious: No
  Sender: FDA-Public Use
  Company Number: US-PFIZER INC-2020199691

PATIENT
  Age: 44 Year
  Sex: Female
  Weight: 54.42 kg

DRUGS (1)
  1. CELEBREX [Suspect]
     Active Substance: CELECOXIB
     Indication: OSTEOARTHRITIS
     Dosage: 200 MG, 2X/DAY (TWICE DAILY)
     Dates: start: 20130121

REACTIONS (1)
  - Drug ineffective [Unknown]
